FAERS Safety Report 6713141-0 (Version None)
Quarter: 2010Q2

REPORT INFORMATION
  Report Type: 
  Country: None (occurrence: None)
  Receive Date: 20100506
  Receipt Date: 20100422
  Transmission Date: 20101027
  Serious: Yes (Hospitalization, Other)
  Sender: FDA-Public Use
  Company Number: PHHY2010CN25473

PATIENT
  Age: 19 Year
  Sex: Male

DRUGS (2)
  1. SEBIVO [Suspect]
     Dosage: UNK
     Route: 048
     Dates: start: 20080801, end: 20100415
  2. INTERFERON [Concomitant]
     Dosage: UNK
     Dates: start: 20090701, end: 20100415

REACTIONS (14)
  - ALANINE AMINOTRANSFERASE INCREASED [None]
  - ASPARTATE AMINOTRANSFERASE INCREASED [None]
  - BILIRUBIN CONJUGATED INCREASED [None]
  - BLOOD BILIRUBIN INCREASED [None]
  - BLOOD CREATINE PHOSPHOKINASE INCREASED [None]
  - BLOOD CREATININE INCREASED [None]
  - BLOOD LACTATE DEHYDROGENASE INCREASED [None]
  - BLOOD LACTIC ACID INCREASED [None]
  - CHEST DISCOMFORT [None]
  - DISCOMFORT [None]
  - MYOGLOBIN BLOOD INCREASED [None]
  - NERVOUSNESS [None]
  - PAIN IN EXTREMITY [None]
  - VOMITING [None]
